FAERS Safety Report 25074466 (Version 1)
Quarter: 2025Q1

REPORT INFORMATION
  Report Type: Report from Study
  Country: AU (occurrence: AU)
  Receive Date: 20250313
  Receipt Date: 20250313
  Transmission Date: 20250409
  Serious: Yes (Other)
  Sender: ROCHE
  Company Number: AU-ROCHE-10000224729

PATIENT

DRUGS (3)
  1. BEVACIZUMAB [Suspect]
     Active Substance: BEVACIZUMAB
     Indication: Product used for unknown indication
     Route: 065
     Dates: start: 20240220, end: 20240703
  2. FLUOROURACIL [Suspect]
     Active Substance: FLUOROURACIL
     Indication: Product used for unknown indication
     Route: 065
     Dates: start: 20240220, end: 20240703
  3. IRINOTECAN [Suspect]
     Active Substance: IRINOTECAN
     Indication: Product used for unknown indication
     Route: 065
     Dates: start: 20240220, end: 20240703

REACTIONS (3)
  - Small intestinal obstruction [Unknown]
  - Abdominal hernia [Unknown]
  - Embolism venous [Unknown]
